FAERS Safety Report 5929605-3 (Version None)
Quarter: 2008Q3

REPORT INFORMATION
  Report Type: 
  Country: None (occurrence: None)
  Receive Date: 20080922
  Receipt Date: 20071108
  Transmission Date: 20090109
  Serious: No
  Sender: FDA-Public Use
  Company Number: T200701384

PATIENT
  Age: 43 Year
  Sex: Female
  Weight: 81.6 kg

DRUGS (7)
  1. METHADONE HCL [Suspect]
     Indication: BACK PAIN
     Dosage: 1/4 TABLET QID, ORAL
     Route: 048
     Dates: start: 20060101, end: 20071101
  2. HYDROCODONE BITARTRATE + ACETAMINOPHEN [Suspect]
     Indication: BACK PAIN
     Dosage: 1 TABLET 6 TIMES DAILY, ORAL
     Route: 048
     Dates: start: 20071103
  3. SYNTHROID [Concomitant]
  4. ALBUTEROL /00139501/ (SALBUTAMOL) [Concomitant]
  5. ALLEGRA /01314201/ (FEXOFENADINE) [Concomitant]
  6. ADVAIR DISKUS 100/50 [Concomitant]
  7. LISINOPRIL [Concomitant]

REACTIONS (7)
  - BURNING SENSATION [None]
  - DRUG INEFFECTIVE [None]
  - DRUG WITHDRAWAL SYNDROME [None]
  - EMOTIONAL DISORDER [None]
  - FORMICATION [None]
  - INSOMNIA [None]
  - RETINAL EXUDATES [None]
